FAERS Safety Report 20067017 (Version 2)
Quarter: 2021Q4

REPORT INFORMATION
  Report Type: Spontaneous
  Country: US (occurrence: US)
  Receive Date: 20211115
  Receipt Date: 20211115
  Transmission Date: 20220303
  Serious: Yes (Hospitalization)
  Sender: FDA-Public Use
  Company Number: US-PROCTER+GAMBLE-PH21009966

PATIENT
  Sex: Female

DRUGS (1)
  1. HERBALS [Suspect]
     Active Substance: HERBALS
     Dosage: UNK

REACTIONS (1)
  - Dyspnoea [Unknown]
